FAERS Safety Report 4750036-6 (Version None)
Quarter: 2005Q3

REPORT INFORMATION
  Report Type: 
  Country: None (occurrence: None)
  Receive Date: 20050822
  Receipt Date: 20050811
  Transmission Date: 20060218
  Serious: Yes (Death, Hospitalization)
  Sender: FDA-Public Use
  Company Number: 200510539BFR

PATIENT
  Age: 79 Year
  Sex: Male

DRUGS (9)
  1. CIPROFLOXACIN [Suspect]
     Dosage: 500 MG, BID, ORAL
     Route: 048
     Dates: start: 20050615, end: 20050620
  2. PREVISCAN (FLUINDIONE) [Suspect]
     Dosage: 10 MG, QD, ORAL
     Route: 048
     Dates: end: 20050622
  3. LEVOTHYROXINE SODIUM [Suspect]
     Dosage: 100 ?G, QD, ORAL
     Route: 048
     Dates: end: 20050622
  4. COVERSYL (PERINDOPRIL) [Suspect]
     Dosage: 4 MG, ORAL
     Route: 048
     Dates: start: 20050614, end: 20050622
  5. HALDOL [Suspect]
     Dosage: 2 MG/ML, QD, ORAL
     Route: 048
     Dates: start: 20050610, end: 20050622
  6. OMEPRAZOLE [Suspect]
     Dosage: 10 MG, ORAL
     Route: 048
     Dates: start: 20050610, end: 20050622
  7. CARDENSIL [Concomitant]
  8. LORAZEPAM [Concomitant]
  9. LASILIX [Concomitant]

REACTIONS (7)
  - CEREBRAL HAEMATOMA [None]
  - CONFUSIONAL STATE [None]
  - DRUG INTERACTION [None]
  - INTERNATIONAL NORMALISED RATIO INCREASED [None]
  - MENINGIOMA [None]
  - OVERDOSE [None]
  - PROTHROMBIN TIME PROLONGED [None]
